FAERS Safety Report 5210909-7 (Version None)
Quarter: 2007Q1

REPORT INFORMATION
  Report Type: 
  Country: None (occurrence: None)
  Receive Date: 20070117
  Receipt Date: 20070108
  Transmission Date: 20070707
  Serious: Yes (Other)
  Sender: FDA-Public Use
  Company Number: GR-PFIZER INC-2007003037

PATIENT

DRUGS (1)
  1. DETRUSITOL [Suspect]
     Indication: URINARY INCONTINENCE

REACTIONS (1)
  - RENAL FAILURE ACUTE [None]
